FAERS Safety Report 9026562 (Version 1)
Quarter: 2013Q1

REPORT INFORMATION
  Report Type: Spontaneous
  Country: IT (occurrence: IT)
  Receive Date: 20130123
  Receipt Date: 20130123
  Transmission Date: 20140127
  Serious: Yes (Hospitalization)
  Sender: FDA-Public Use
  Company Number: IT-JNJFOC-20130104670

PATIENT
  Age: 43 Year
  Sex: Female

DRUGS (2)
  1. SERENASE [Suspect]
     Indication: ADJUSTMENT DISORDER WITH MIXED ANXIETY AND DEPRESSED MOOD
     Route: 048
     Dates: start: 20121213, end: 20121213
  2. LORAZEPAM [Suspect]
     Indication: ADJUSTMENT DISORDER WITH MIXED ANXIETY AND DEPRESSED MOOD
     Route: 048
     Dates: start: 20121213, end: 20121213

REACTIONS (3)
  - Substance abuse [Unknown]
  - Somnolence [Recovering/Resolving]
  - Overdose [Recovering/Resolving]
